FAERS Safety Report 17354354 (Version 5)
Quarter: 2024Q1

REPORT INFORMATION
  Report Type: Spontaneous
  Country: US (occurrence: US)
  Receive Date: 20200131
  Receipt Date: 20240105
  Transmission Date: 20240409
  Serious: Yes (Other)
  Sender: FDA-Public Use
  Company Number: US-GILEAD-2020-0448785

PATIENT
  Age: 62 Year
  Sex: Male
  Weight: 67 kg

DRUGS (46)
  1. ATRIPLA [Suspect]
     Active Substance: EFAVIRENZ\EMTRICITABINE\TENOFOVIR DISOPROXIL FUMARATE
     Indication: HIV infection
     Dosage: UNK
     Route: 048
     Dates: start: 2013
  2. TRUVADA [Suspect]
     Active Substance: EMTRICITABINE\TENOFOVIR DISOPROXIL FUMARATE
     Indication: HIV infection
     Dosage: UNK
     Route: 048
     Dates: start: 20100127, end: 20100323
  3. TRUVADA [Suspect]
     Active Substance: EMTRICITABINE\TENOFOVIR DISOPROXIL FUMARATE
     Dosage: UNK
     Route: 048
     Dates: start: 20100127, end: 20100227
  4. TRUVADA [Suspect]
     Active Substance: EMTRICITABINE\TENOFOVIR DISOPROXIL FUMARATE
     Dosage: UNK
     Route: 048
     Dates: start: 20100224, end: 20100324
  5. TRUVADA [Suspect]
     Active Substance: EMTRICITABINE\TENOFOVIR DISOPROXIL FUMARATE
     Dosage: UNK
     Route: 048
     Dates: start: 20100323, end: 20100423
  6. GENVOYA [Concomitant]
     Active Substance: COBICISTAT\ELVITEGRAVIR\EMTRICITABINE\TENOFOVIR ALAFENAMIDE FUMARATE
  7. HARVONI [Concomitant]
     Active Substance: LEDIPASVIR\SOFOSBUVIR
     Indication: Hepatitis C
  8. GLIPIZIDE [Concomitant]
     Active Substance: GLIPIZIDE
     Indication: Diabetes mellitus
  9. GLIPIZIDE XL [Concomitant]
     Active Substance: GLIPIZIDE
     Indication: Diabetes mellitus
  10. GLYBURIDE [Concomitant]
     Active Substance: GLYBURIDE
     Indication: Diabetes mellitus
  11. AMLODIPINE [Concomitant]
     Active Substance: AMLODIPINE BESYLATE
     Indication: Hypertension
  12. ENALAPRIL MALEATE [Concomitant]
     Active Substance: ENALAPRIL MALEATE
     Indication: Hypertension
  13. ENALAPRIL [Concomitant]
     Active Substance: ENALAPRIL
     Indication: Hypertension
  14. LOSARTAN POTASSIUM [Concomitant]
     Active Substance: LOSARTAN POTASSIUM
     Indication: Hypertension
  15. METOPROLOL TARTRATE [Concomitant]
     Active Substance: METOPROLOL TARTRATE
     Indication: Hypertension
  16. CRIXIVAN [Concomitant]
     Active Substance: INDINAVIR SULFATE
  17. ISENTRESS [Concomitant]
     Active Substance: RALTEGRAVIR POTASSIUM
  18. KALETRA [Concomitant]
     Active Substance: LOPINAVIR\RITONAVIR
  19. NORVIR [Concomitant]
     Active Substance: RITONAVIR
  20. PREZISTA [Concomitant]
     Active Substance: DARUNAVIR ETHANOLATE
  21. RETROVIR [Concomitant]
     Active Substance: ZIDOVUDINE
  22. SUSTIVA [Concomitant]
     Active Substance: EFAVIRENZ
  23. TIVICAY [Concomitant]
     Active Substance: DOLUTEGRAVIR SODIUM
  24. ALLOPURINOL [Concomitant]
     Active Substance: ALLOPURINOL
  25. AMOXICILLIN [Concomitant]
     Active Substance: AMOXICILLIN
  26. ASPIRIN [Concomitant]
     Active Substance: ASPIRIN
  27. ASPIRIN [Concomitant]
     Active Substance: ASPIRIN
  28. CALCITRIOL [Concomitant]
     Active Substance: CALCITRIOL
  29. CALCIUM ACETATE [Concomitant]
     Active Substance: CALCIUM ACETATE
  30. CRESTOR [Concomitant]
     Active Substance: ROSUVASTATIN CALCIUM
  31. FOLIC ACID [Concomitant]
     Active Substance: FOLIC ACID
  32. FUROSEMIDE [Concomitant]
     Active Substance: FUROSEMIDE
  33. HYDROCHLOROTHIAZIDE [Concomitant]
     Active Substance: HYDROCHLOROTHIAZIDE
  34. ISONIAZID [Concomitant]
     Active Substance: ISONIAZID
  35. NICOTINE TRANSDERMAL SYSTEM [Concomitant]
     Active Substance: NICOTINE
  36. PANTOPRAZOLE SODIUM [Concomitant]
     Active Substance: PANTOPRAZOLE SODIUM
  37. PRAVASTATIN SODIUM [Concomitant]
     Active Substance: PRAVASTATIN SODIUM
  38. PYRIDOXINE(B) [Concomitant]
  39. RITONAVIR [Concomitant]
     Active Substance: RITONAVIR
  40. SEVELAMER CARBONATE [Concomitant]
     Active Substance: SEVELAMER CARBONATE
  41. SODIUM BICARBONATE [Concomitant]
     Active Substance: SODIUM BICARBONATE
  42. SPS [Concomitant]
     Active Substance: SODIUM POLYSTYRENE SULFONATE
  43. THERA-M [Concomitant]
  44. VALSARTAN [Concomitant]
     Active Substance: VALSARTAN
  45. VITAMIN B12 [Concomitant]
     Active Substance: CYANOCOBALAMIN
  46. VITAMIN D3 [Concomitant]
     Active Substance: CHOLECALCIFEROL

REACTIONS (10)
  - End stage renal disease [Not Recovered/Not Resolved]
  - Renal failure [Not Recovered/Not Resolved]
  - Renal disorder [Not Recovered/Not Resolved]
  - Osteopenia [Not Recovered/Not Resolved]
  - Economic problem [Not Recovered/Not Resolved]
  - Anhedonia [Not Recovered/Not Resolved]
  - Emotional distress [Not Recovered/Not Resolved]
  - Anxiety [Not Recovered/Not Resolved]
  - Pain [Not Recovered/Not Resolved]
  - Blood creatinine increased [Not Recovered/Not Resolved]

NARRATIVE: CASE EVENT DATE: 20130601
